FAERS Safety Report 9126411 (Version 1)
Quarter: 2013Q1

REPORT INFORMATION
  Report Type: Report from Study
  Country: JP (occurrence: JP)
  Receive Date: 20130117
  Receipt Date: 20130117
  Transmission Date: 20140127
  Serious: Yes (Death)
  Sender: FDA-Public Use
  Company Number: JP-GLAXOSMITHKLINE-B0858623A

PATIENT
  Age: 52 Year
  Sex: Female
  Weight: 60 kg

DRUGS (14)
  1. TYKERB [Suspect]
     Indication: BREAST CANCER
     Dosage: 1250MG PER DAY
     Route: 048
     Dates: start: 20110119, end: 20110315
  2. TYKERB [Suspect]
     Indication: BREAST CANCER
     Dosage: 1250MG PER DAY
     Route: 048
     Dates: start: 20110331, end: 20110420
  3. TYKERB [Suspect]
     Indication: BREAST CANCER
     Dosage: 1250MG PER DAY
     Route: 048
     Dates: start: 20110427, end: 20110608
  4. TYKERB [Suspect]
     Indication: BREAST CANCER
     Dosage: 1250MG PER DAY
     Route: 048
     Dates: start: 20110625, end: 20110706
  5. XELODA [Suspect]
     Dosage: 1200MG PER DAY
     Route: 048
     Dates: start: 20110119, end: 20110315
  6. XELODA [Suspect]
     Dosage: 1200MG PER DAY
     Route: 048
     Dates: start: 20110331, end: 20110420
  7. XELODA [Suspect]
     Dosage: 1200MG PER DAY
     Route: 048
     Dates: start: 20110427, end: 20110608
  8. GEMZAR [Suspect]
     Dosage: 1800MG PER DAY
     Route: 042
     Dates: start: 20110711, end: 20110907
  9. KERATINAMIN [Concomitant]
     Indication: PROPHYLAXIS
     Route: 061
     Dates: start: 20110119, end: 20110518
  10. ANASTROZOLE [Concomitant]
     Indication: BREAST CANCER
     Route: 048
     Dates: start: 20110711, end: 20110914
  11. FENTOS [Concomitant]
     Indication: CANCER PAIN
     Route: 062
     Dates: start: 20110707, end: 20110921
  12. DEXART [Concomitant]
     Indication: BRAIN OEDEMA
     Route: 042
     Dates: start: 20110707, end: 20110819
  13. DECADRON [Concomitant]
     Indication: BRAIN OEDEMA
     Route: 048
     Dates: start: 20110820, end: 20110920
  14. MYSLEE [Concomitant]
     Indication: INSOMNIA
     Route: 048
     Dates: start: 20110718, end: 20110914

REACTIONS (1)
  - Liver disorder [Fatal]
